FAERS Safety Report 5104574-7 (Version None)
Quarter: 2006Q3

REPORT INFORMATION
  Report Type: 
  Country: None (occurrence: None)
  Receive Date: 20060911
  Receipt Date: 20060828
  Transmission Date: 20061208
  Serious: Yes (Hospitalization)
  Sender: FDA-Public Use
  Company Number: DE200608006735

PATIENT
  Age: 70 Year
  Sex: Male

DRUGS (9)
  1. ZYPREXA [Suspect]
     Indication: BIPOLAR DISORDER
     Dosage: 2.5 MG, DAILY (1/D), ORAL; SEE IMAGE
     Route: 048
     Dates: start: 20060715
  2. ZYPREXA [Suspect]
     Indication: BIPOLAR DISORDER
     Dosage: 2.5 MG, DAILY (1/D), ORAL; SEE IMAGE
     Route: 048
     Dates: start: 20060807
  3. ZYPREXA [Suspect]
     Indication: BIPOLAR DISORDER
     Dosage: 2.5 MG, DAILY (1/D), ORAL; SEE IMAGE
     Route: 048
     Dates: start: 20060812
  4. ZYPREXA [Suspect]
     Indication: BIPOLAR DISORDER
     Dosage: 2.5 MG, DAILY (1/D), ORAL; SEE IMAGE
     Route: 048
     Dates: start: 20060813
  5. ZYPREXA [Suspect]
     Indication: BIPOLAR DISORDER
     Dosage: 2.5 MG, DAILY (1/D), ORAL; SEE IMAGE
     Route: 048
     Dates: start: 20060817
  6. LEVOTHYROXINE SODIUM [Concomitant]
  7. ENALAPRIL MALEATE [Concomitant]
  8. ALLOPURINOL [Concomitant]
  9. XIMOVAN (ZOPICLONE) [Concomitant]

REACTIONS (3)
  - INFECTION [None]
  - LEUKOPENIA [None]
  - THROMBOCYTOPENIA [None]
